FAERS Safety Report 23957394 (Version 2)
Quarter: 2024Q2

REPORT INFORMATION
  Report Type: Spontaneous
  Country: CN (occurrence: CN)
  Receive Date: 20240610
  Receipt Date: 20240619
  Transmission Date: 20240716
  Serious: Yes (Other)
  Sender: FDA-Public Use
  Company Number: CN-009507513-2406CHN002464

PATIENT
  Age: 51 Year
  Sex: Male

DRUGS (3)
  1. KEYTRUDA [Suspect]
     Active Substance: PEMBROLIZUMAB
     Indication: Lung adenocarcinoma
     Dosage: 200 MILLIGRAM, Q3W
     Route: 041
     Dates: start: 20231226, end: 20240116
  2. PEMETREXED [Suspect]
     Active Substance: PEMETREXED
     Indication: Lung adenocarcinoma
     Dosage: 0.8 G, ONCE ON DAY1
     Route: 041
     Dates: start: 20231226, end: 20240116
  3. CARBOPLATIN [Suspect]
     Active Substance: CARBOPLATIN
     Indication: Lung adenocarcinoma
     Dosage: 0.67 G, ONCE ON DAY1
     Route: 041
     Dates: start: 20231226, end: 20240116

REACTIONS (8)
  - Malignant neoplasm progression [Unknown]
  - Pneumonia [Unknown]
  - Immunosuppression [Recovering/Resolving]
  - Hepatic cyst [Unknown]
  - Emphysema [Unknown]
  - Adrenomegaly [Unknown]
  - Thyroid gland scan abnormal [Unknown]
  - Bone density increased [Unknown]

NARRATIVE: CASE EVENT DATE: 20231227
